FAERS Safety Report 25832973 (Version 3)
Quarter: 2025Q4

REPORT INFORMATION
  Report Type: Spontaneous
  Country: US (occurrence: US)
  Receive Date: 20250922
  Receipt Date: 20251020
  Transmission Date: 20260118
  Serious: No
  Sender: CALLIDITAS THERAPEUTICS AB
  Company Number: US-Calliditas-2025CAL02108

PATIENT
  Age: 41 Year
  Sex: Female

DRUGS (4)
  1. TARPEYO [Suspect]
     Active Substance: BUDESONIDE
     Indication: IgA nephropathy
     Route: 048
     Dates: start: 20250620
  2. JARDIANCE [Concomitant]
     Active Substance: EMPAGLIFLOZIN
  3. OMEPRAZOLE [Concomitant]
     Active Substance: OMEPRAZOLE
  4. VITAMINS [Concomitant]
     Active Substance: VITAMINS

REACTIONS (13)
  - Nausea [Recovered/Resolved]
  - Migraine [Unknown]
  - Vomiting [Recovered/Resolved]
  - Throat irritation [Unknown]
  - Cough [Unknown]
  - Sputum discoloured [Unknown]
  - Rash [Recovered/Resolved]
  - Blood pressure increased [Unknown]
  - Oropharyngeal pain [Not Recovered/Not Resolved]
  - Chest discomfort [Not Recovered/Not Resolved]
  - Chest pain [Not Recovered/Not Resolved]
  - Nausea [Unknown]
  - Vomiting [Unknown]

NARRATIVE: CASE EVENT DATE: 20250630
